FAERS Safety Report 26011963 (Version 1)
Quarter: 2025Q4

REPORT INFORMATION
  Report Type: Spontaneous
  Country: US (occurrence: None)
  Receive Date: 20251107
  Receipt Date: 20251107
  Transmission Date: 20260117
  Serious: No
  Sender: FDA-CTU
  Company Number: None

PATIENT
  Age: 72 Year
  Sex: Female
  Weight: 65 kg

DRUGS (1)
  1. DILTIAZEM HYDROCHLORIDE [Suspect]
     Active Substance: DILTIAZEM HYDROCHLORIDE
     Indication: Hypertension
     Dates: start: 20250617

REACTIONS (2)
  - Hypertension [None]
  - Headache [None]

NARRATIVE: CASE EVENT DATE: 20250913
